FAERS Safety Report 22215121 (Version 1)
Quarter: 2023Q2

REPORT INFORMATION
  Report Type: Report from Study
  Country: US (occurrence: US)
  Receive Date: 20230415
  Receipt Date: 20230415
  Transmission Date: 20230722
  Serious: No
  Sender: FDA-Public Use
  Company Number: US-ABBVIE-4304899

PATIENT
  Sex: Female
  Weight: 65.77 kg

DRUGS (5)
  1. HUMIRA [Suspect]
     Active Substance: ADALIMUMAB
     Indication: Uveitis
     Route: 058
     Dates: start: 20221103
  2. HUMIRA [Suspect]
     Active Substance: ADALIMUMAB
     Indication: Uveitis
  3. NEXIUM [Concomitant]
     Active Substance: ESOMEPRAZOLE MAGNESIUM
     Indication: Gastrooesophageal reflux disease
  4. XANAX [Concomitant]
     Active Substance: ALPRAZOLAM
     Indication: Sleep disorder therapy
     Dosage: AS NEEDED
  5. LIPITOR [Concomitant]
     Active Substance: ATORVASTATIN CALCIUM
     Indication: Blood cholesterol increased

REACTIONS (3)
  - Upper-airway cough syndrome [Recovered/Resolved]
  - Arthralgia [Recovered/Resolved]
  - Arthralgia [Not Recovered/Not Resolved]

NARRATIVE: CASE EVENT DATE: 20220101
